FAERS Safety Report 20452704 (Version 2)
Quarter: 2022Q1

REPORT INFORMATION
  Report Type: Report from Study
  Country: US (occurrence: US)
  Receive Date: 20220210
  Receipt Date: 20220330
  Transmission Date: 20220424
  Serious: Yes (Other)
  Sender: FDA-Public Use
  Company Number: US-ABBVIE-22K-163-4272529-00

PATIENT
  Sex: Female

DRUGS (1)
  1. VENCLEXTA [Suspect]
     Active Substance: VENETOCLAX
     Indication: Chronic lymphocytic leukaemia
     Route: 048
     Dates: start: 202004

REACTIONS (8)
  - Skin cancer [Unknown]
  - Red blood cell count abnormal [Unknown]
  - Atrial fibrillation [Unknown]
  - Haematocrit abnormal [Unknown]
  - Lymphocyte count abnormal [Unknown]
  - Haemoglobin abnormal [Unknown]
  - Platelet count abnormal [Unknown]
  - White blood cell count abnormal [Unknown]
